FAERS Safety Report 4549638-1 (Version None)
Quarter: 2005Q1

REPORT INFORMATION
  Report Type: 
  Country: None (occurrence: None)
  Receive Date: 20050111
  Receipt Date: 20050103
  Transmission Date: 20050727
  Serious: Yes (Other)
  Sender: FDA-Public Use
  Company Number: US-GLAXOSMITHKLINE-A0539098A

PATIENT
  Age: 55 Year
  Sex: Female

DRUGS (9)
  1. PAXIL [Suspect]
     Indication: DEPRESSION
     Dosage: 10MG PER DAY
     Route: 048
  2. LAMICTAL [Concomitant]
  3. FLONASE [Concomitant]
  4. UNSPECIFIED THYROID MEDICATION [Concomitant]
  5. ZYPREXA [Concomitant]
  6. LORAZEPAM [Concomitant]
  7. LISINOPRIL [Concomitant]
  8. PROMETHAZINE VC PLAIN [Concomitant]
  9. ALBUTEROL [Concomitant]

REACTIONS (5)
  - AMNESIA [None]
  - ANGER [None]
  - CONVULSION [None]
  - DYSKINESIA [None]
  - HYPERHIDROSIS [None]
